FAERS Safety Report 14614596 (Version 1)
Quarter: 2018Q1

REPORT INFORMATION
  Report Type: Spontaneous
  Country: US (occurrence: US)
  Receive Date: 20180308
  Receipt Date: 20180308
  Transmission Date: 20180509
  Serious: No
  Sender: FDA-Public Use
  Company Number: US-PERRIGO-17US030458

PATIENT
  Age: 62 Year
  Sex: Female
  Weight: 93.42 kg

DRUGS (2)
  1. NICOTINE POLACRILEX [Suspect]
     Active Substance: NICOTINE
     Indication: SMOKING CESSATION THERAPY
     Dosage: 2 MG, 2 TO 3 TIMES DAILY FOR 7 DAYS
     Route: 002
     Dates: start: 201706, end: 201706
  2. SYNTHROID [Concomitant]
     Active Substance: LEVOTHYROXINE SODIUM
     Indication: GOITRE
     Dosage: 0.88 MCG
     Route: 065

REACTIONS (3)
  - Protein urine present [Unknown]
  - Diabetes mellitus [Not Recovered/Not Resolved]
  - Glycosylated haemoglobin increased [Recovering/Resolving]

NARRATIVE: CASE EVENT DATE: 20170821
